FAERS Safety Report 4475455-7 (Version None)
Quarter: 2004Q4

REPORT INFORMATION
  Report Type: 
  Country: None (occurrence: None)
  Receive Date: 20041014
  Receipt Date: 20041014
  Transmission Date: 20050328
  Serious: Yes (Other)
  Sender: FDA-Public Use
  Company Number: None

PATIENT
  Sex: Female

DRUGS (1)
  1. TIZANIDINE HCL [Suspect]
     Indication: PARESIS
     Dosage: CHANGE TO ZANAFLEX BMN [LIFETIME]

REACTIONS (2)
  - CONDITION AGGRAVATED [None]
  - MUSCLE SPASMS [None]
